FAERS Safety Report 9230690 (Version 1)
Quarter: 2013Q2

REPORT INFORMATION
  Report Type: Spontaneous
  Country: CA (occurrence: CA)
  Receive Date: 20130415
  Receipt Date: 20130415
  Transmission Date: 20140414
  Serious: Yes (Other)
  Sender: FDA-Public Use
  Company Number: CA-BAYER-2013-036090

PATIENT
  Age: 52 Year
  Sex: Female

DRUGS (2)
  1. XARELTO [Suspect]
     Indication: PULMONARY EMBOLISM
     Dosage: 20 MG, UNK
     Dates: start: 20121201, end: 20130307
  2. YAZ [Suspect]
     Indication: CONTRACEPTION

REACTIONS (2)
  - Haemoglobin decreased [Recovering/Resolving]
  - Menorrhagia [Recovering/Resolving]
